FAERS Safety Report 19040529 (Version 7)
Quarter: 2021Q2

REPORT INFORMATION
  Report Type: Spontaneous
  Country: GB (occurrence: GB)
  Receive Date: 20210323
  Receipt Date: 20210629
  Transmission Date: 20210717
  Serious: Yes (Other)
  Sender: FDA-Public Use
  Company Number: GB-TEVA-2021-GB-1878465

PATIENT
  Sex: Female

DRUGS (9)
  1. REVLIMID [Suspect]
     Active Substance: LENALIDOMIDE
     Route: 048
     Dates: start: 202008
  2. IXAZOMIB [Suspect]
     Active Substance: IXAZOMIB
     Dosage: 2.3 MG
     Route: 048
     Dates: start: 202008
  3. DEXAMETHASONE. [Suspect]
     Active Substance: DEXAMETHASONE
     Indication: PLASMA CELL MYELOMA
     Route: 065
     Dates: start: 20190528
  4. REVLIMID [Suspect]
     Active Substance: LENALIDOMIDE
     Indication: PLASMA CELL MYELOMA
     Route: 065
     Dates: start: 20190528
  5. REVLIMID [Suspect]
     Active Substance: LENALIDOMIDE
     Route: 048
     Dates: start: 202011
  6. DEXAMETHASONE. [Suspect]
     Active Substance: DEXAMETHASONE
     Route: 065
     Dates: start: 20190904, end: 20200202
  7. IXAZOMIB [Suspect]
     Active Substance: IXAZOMIB
     Indication: PLASMA CELL MYELOMA
     Route: 048
     Dates: start: 202011
  8. IXAZOMIB [Suspect]
     Active Substance: IXAZOMIB
     Dosage: 4 MG
     Route: 048
     Dates: start: 20190528
  9. IXAZOMIB [Suspect]
     Active Substance: IXAZOMIB
     Route: 065

REACTIONS (19)
  - Diarrhoea [Not Recovered/Not Resolved]
  - Ageusia [Unknown]
  - Dry skin [Unknown]
  - Thrombocytopenia [Unknown]
  - Cytopenia [Unknown]
  - Neuropathy peripheral [Unknown]
  - Weight decreased [Unknown]
  - Orthostatic hypotension [Unknown]
  - Rash [Recovering/Resolving]
  - Productive cough [Unknown]
  - Diarrhoea [Not Recovered/Not Resolved]
  - Platelet count decreased [Unknown]
  - Balance disorder [Unknown]
  - Gait disturbance [Unknown]
  - Decreased appetite [Unknown]
  - Haemoglobin decreased [Unknown]
  - Epistaxis [Unknown]
  - Fatigue [Not Recovered/Not Resolved]
  - Anxiety [Not Recovered/Not Resolved]

NARRATIVE: CASE EVENT DATE: 20210105
